FAERS Safety Report 7246804-1 (Version None)
Quarter: 2011Q1

REPORT INFORMATION
  Report Type: 
  Country: None (occurrence: None)
  Receive Date: 20110127
  Receipt Date: 20110124
  Transmission Date: 20110831
  Serious: Yes (Other)
  Sender: FDA-Public Use
  Company Number: US-PFIZER INC-2010065822

PATIENT
  Sex: Female
  Weight: 100 kg

DRUGS (13)
  1. CHANTIX [Suspect]
     Dosage: UNK
     Dates: start: 20100301, end: 20100101
  2. ALBUTEROL [Concomitant]
     Indication: ASTHMA
     Dosage: UNK
  3. LODINE [Concomitant]
     Indication: HYPERTENSION
     Dosage: UNK
  4. POTASSIUM [Concomitant]
     Indication: CARDIAC FAILURE CONGESTIVE
     Dosage: UNK
  5. CHANTIX [Suspect]
     Dosage: 1 MG, 2X/DAY
     Dates: start: 20100101
  6. CLONIDINE [Concomitant]
     Indication: BLOOD PRESSURE ABNORMAL
     Dosage: 0.2 MG, EVERY 8 HOURS
     Route: 048
  7. METFORMIN [Concomitant]
     Indication: DIABETES MELLITUS
     Dosage: 500 MG, 2X/DAY
     Route: 048
  8. SOMA [Concomitant]
     Indication: MUSCLE RELAXANT THERAPY
     Dosage: UNK
  9. CHANTIX [Suspect]
     Dosage: UNK
     Dates: start: 20101001
  10. PULMICORT [Concomitant]
     Indication: ASTHMA
     Dosage: UNK
  11. CHANTIX [Suspect]
     Dosage: UNK
     Dates: end: 20101101
  12. CHANTIX [Suspect]
     Indication: SMOKING CESSATION THERAPY
     Dosage: 0.5 MG, 1X/DAY
     Route: 048
     Dates: start: 20070101
  13. LASIX [Concomitant]
     Indication: DIURETIC THERAPY
     Dosage: UNK

REACTIONS (2)
  - PSYCHOTIC DISORDER [None]
  - WEIGHT INCREASED [None]
